FAERS Safety Report 7959355-3 (Version None)
Quarter: 2011Q4

REPORT INFORMATION
  Report Type: 
  Country: None (occurrence: None)
  Receive Date: 20111206
  Receipt Date: 20111201
  Transmission Date: 20120403
  Serious: Yes (Hospitalization)
  Sender: FDA-Public Use
  Company Number: US-PFIZER INC-2011292723

PATIENT
  Age: 56 Year
  Sex: Female
  Weight: 60.8 kg

DRUGS (3)
  1. MYLOTARG [Suspect]
     Indication: ACUTE MYELOID LEUKAEMIA
     Dosage: 3 MG/M2, OVER 2 HRS ON DAYS 4 AND 8
     Route: 042
     Dates: start: 20111110, end: 20111110
  2. VIDAZA [Suspect]
     Indication: ACUTE MYELOID LEUKAEMIA
     Dosage: 75 MG/M2/DAY, ON DAYS 1-7, SC OR IV
     Dates: start: 20111107
  3. ZOLINZA [Suspect]
     Indication: ACUTE MYELOID LEUKAEMIA
     Dosage: 400 MG, QD ON DAYS 1-9
     Route: 048
     Dates: start: 20111107, end: 20111113

REACTIONS (4)
  - PNEUMOTHORAX [None]
  - SUPRAVENTRICULAR TACHYCARDIA [None]
  - PNEUMONITIS [None]
  - PYREXIA [None]
